FAERS Safety Report 5297679-1 (Version None)
Quarter: 2007Q1

REPORT INFORMATION
  Report Type: 
  Country: None (occurrence: None)
  Receive Date: 20070201
  Receipt Date: 20061030
  Transmission Date: 20070707
  Serious: No
  Sender: FDA-Public Use
  Company Number: 2006PV024173

PATIENT
  Age: 70 Year
  Sex: Female
  Weight: 103.4201 kg

DRUGS (5)
  1. BYETTA [Suspect]
     Indication: DIABETES MELLITUS NON-INSULIN-DEPENDENT
     Dosage: 5 MCG;BID;SC
     Route: 058
     Dates: start: 20060831
  2. GLUCOSE TABLETS [Suspect]
     Indication: BLOOD GLUCOSE DECREASED
     Dates: start: 20060101, end: 20060101
  3. METFORMIN HCL [Concomitant]
  4. PRANDIN [Concomitant]
  5. GLIMEPIRIDE [Concomitant]

REACTIONS (7)
  - BLOOD GLUCOSE DECREASED [None]
  - BLOOD GLUCOSE INCREASED [None]
  - DECREASED APPETITE [None]
  - DIZZINESS [None]
  - DYSPEPSIA [None]
  - FEELING ABNORMAL [None]
  - WEIGHT DECREASED [None]
